FAERS Safety Report 6897326-9 (Version None)
Quarter: 2010Q3

REPORT INFORMATION
  Report Type: 
  Country: None (occurrence: None)
  Receive Date: 20100802
  Receipt Date: 20070606
  Transmission Date: 20110219
  Serious: No
  Sender: FDA-Public Use
  Company Number: US-PFIZER INC-2007014597

PATIENT
  Sex: Female
  Weight: 52.2 kg

DRUGS (4)
  1. LYRICA [Suspect]
     Indication: NERVE INJURY
     Dates: start: 20061201
  2. LITHIUM [Concomitant]
  3. LIBRIUM [Concomitant]
  4. ANAFRANIL [Concomitant]

REACTIONS (3)
  - ABDOMINAL PAIN LOWER [None]
  - DRY MOUTH [None]
  - FEELING ABNORMAL [None]
